FAERS Safety Report 23546375 (Version 1)
Quarter: 2024Q1

REPORT INFORMATION
  Report Type: Spontaneous
  Country: AU (occurrence: AU)
  Receive Date: 20240220
  Receipt Date: 20240220
  Transmission Date: 20240409
  Serious: Yes (Other)
  Sender: FDA-Public Use
  Company Number: AU-BAXTER-2024BAX013051

PATIENT
  Sex: Male

DRUGS (8)
  1. CYCLOPHOSPHAMIDE [Suspect]
     Active Substance: CYCLOPHOSPHAMIDE
     Indication: Marginal zone lymphoma
     Dosage: UNK, AS A PART OF R-CHOP, START DATE: 2009
     Route: 065
  2. DOXORUBICIN [Suspect]
     Active Substance: DOXORUBICIN
     Indication: Marginal zone lymphoma
     Dosage: UNK, AS A PART OF R-CHOP, START DATE: 2009
     Route: 065
  3. PREDNISONE [Suspect]
     Active Substance: PREDNISONE
     Indication: Marginal zone lymphoma
     Dosage: UNK, AS A PART OF R-CHOP, START DATE: 2009
     Route: 065
  4. RITUXIMAB [Suspect]
     Active Substance: RITUXIMAB
     Indication: Marginal zone lymphoma recurrent
     Dosage: UNK, AS A PART OF R-CHOP, START DATE: 2009
     Route: 065
  5. RITUXIMAB [Suspect]
     Active Substance: RITUXIMAB
     Indication: Marginal zone lymphoma
     Dosage: UNK, AS A PART OF R-GEM-OX, START DATE: 2019
     Route: 065
  6. VINCRISTINE [Suspect]
     Active Substance: VINCRISTINE
     Indication: Marginal zone lymphoma
     Dosage: UNK, AS A PART OF R-CHOP, START DATE: 2009
     Route: 065
  7. GEMCITABINE [Suspect]
     Active Substance: GEMCITABINE
     Indication: Marginal zone lymphoma recurrent
     Dosage: UNK, AS A PART OF R-GEM-OX, START DATE: 2019
     Route: 065
  8. OXALIPLATIN [Suspect]
     Active Substance: OXALIPLATIN
     Indication: Marginal zone lymphoma recurrent
     Dosage: UNK, AS A PART OF R-GEM-OX, START DATE: 2019
     Route: 065

REACTIONS (3)
  - Gastrointestinal disorder [Unknown]
  - Lung carcinoma cell type unspecified recurrent [Unknown]
  - Marginal zone lymphoma recurrent [Unknown]
